FAERS Safety Report 7572191-5 (Version None)
Quarter: 2011Q2

REPORT INFORMATION
  Report Type: 
  Country: None (occurrence: None)
  Receive Date: 20110624
  Receipt Date: 20110610
  Transmission Date: 20111010
  Serious: Yes (Death)
  Sender: FDA-Public Use
  Company Number: PHHY2011CN47104

PATIENT
  Sex: Male

DRUGS (5)
  1. ZOLEDRONIC ACID [Suspect]
     Indication: OSTEOPOROSIS
     Dosage: 5 MG, UNK
     Route: 042
     Dates: start: 20110530
  2. CALCIUM CARBONATE [Concomitant]
     Dosage: UNK UKN, UNK
  3. YINXINGDAMO [Concomitant]
  4. VITAMIN D [Concomitant]
  5. SAPONINS [Concomitant]
     Dosage: UNK UKN, UNK

REACTIONS (8)
  - DIZZINESS [None]
  - ARTHRALGIA [None]
  - PAIN [None]
  - MUSCULAR WEAKNESS [None]
  - FATIGUE [None]
  - DEATH [None]
  - URINARY INCONTINENCE [None]
  - PYREXIA [None]
